FAERS Safety Report 4362039-4 (Version None)
Quarter: 2004Q2

REPORT INFORMATION
  Report Type: 
  Country: None (occurrence: None)
  Receive Date: 20040521
  Receipt Date: 20040224
  Transmission Date: 20050107
  Serious: No
  Sender: FDA-Public Use
  Company Number: US-GLAXOSMITHKLINE-A0499593A

PATIENT
  Age: 54 Year
  Sex: Female

DRUGS (4)
  1. WELLBUTRIN XL [Suspect]
     Indication: FIBROMYALGIA
     Dosage: 300MG PER DAY
     Route: 048
     Dates: end: 20040224
  2. EVISTA [Concomitant]
  3. CALTRATE [Concomitant]
  4. MULTI-VITAMIN [Concomitant]

REACTIONS (3)
  - PAIN [None]
  - PRURITUS [None]
  - URTICARIA [None]
